FAERS Safety Report 17121065 (Version 1)
Quarter: 2019Q4

REPORT INFORMATION
  Report Type: Spontaneous
  Country: US (occurrence: US)
  Receive Date: 20191206
  Receipt Date: 20191206
  Transmission Date: 20200122
  Serious: No
  Sender: FDA-Public Use
  Company Number: US-MYLANLABS-2019M1115077

PATIENT
  Sex: Female
  Weight: 50 kg

DRUGS (1)
  1. ESTRADIOL TRANSDERMAL SYSTEM [Suspect]
     Active Substance: ESTRADIOL
     Indication: HYSTERECTOMY
     Dosage: TWICE WEEKLY
     Route: 062

REACTIONS (10)
  - Application site rash [Recovering/Resolving]
  - Crying [Recovered/Resolved]
  - Application site pain [Recovering/Resolving]
  - Application site irritation [Recovering/Resolving]
  - Rash [Recovering/Resolving]
  - Affective disorder [Recovered/Resolved]
  - Application site vesicles [Recovering/Resolving]
  - Product adhesion issue [Unknown]
  - Application site pruritus [Recovering/Resolving]
  - Drug ineffective [Recovering/Resolving]
